FAERS Safety Report 9218576 (Version 1)
Quarter: 2013Q1

REPORT INFORMATION
  Report Type: Spontaneous
  Country: US (occurrence: None)
  Receive Date: 20120827
  Receipt Date: 20120827
  Transmission Date: 20140127
  Serious: Yes (Hospitalization)
  Sender: FDA-Public Use
  Company Number: 352741

PATIENT
  Age: 66 Year
  Sex: Female
  Weight: 89.3 kg

DRUGS (4)
  1. VICTOZA (LIRAGLUTIDE) SOLUTION FOR INJECTION, 6MG/ML [Suspect]
     Indication: TYPE 2 DIABETES MELLITUS
     Route: 058
     Dates: start: 20111202, end: 20120403
  2. LOVAZA (OMEGA-3 MARINE TRIGLYCERIDES) [Concomitant]
  3. LEVOTHYROXINE (LEVOTHYROXINE) [Concomitant]
  4. FLONASE (FLUTICASONE PROPIONATE) [Concomitant]

REACTIONS (1)
  - Pancreatitis [None]
